FAERS Safety Report 13831475 (Version 1)
Quarter: 2017Q3

REPORT INFORMATION
  Report Type: Spontaneous
  Country: CA (occurrence: CA)
  Receive Date: 20170803
  Receipt Date: 20170803
  Transmission Date: 20171127
  Serious: Yes (Other)
  Sender: FDA-Public Use
  Company Number: CA-SUNOVION-2017SUN003378

PATIENT
  Age: 18 Year
  Sex: Male
  Weight: 46 kg

DRUGS (6)
  1. APTIOM [Suspect]
     Active Substance: ESLICARBAZEPINE ACETATE
     Dosage: 400 MG, QD
     Route: 048
  2. APTIOM [Suspect]
     Active Substance: ESLICARBAZEPINE ACETATE
     Indication: SEVERE MYOCLONIC EPILEPSY OF INFANCY
     Dosage: 400 MG, BID
     Route: 048
     Dates: start: 201706, end: 201707
  3. APTIOM [Suspect]
     Active Substance: ESLICARBAZEPINE ACETATE
     Indication: EPILEPSY
     Dosage: 400 MG, QD
     Route: 048
  4. CLOBAZAM [Concomitant]
     Active Substance: CLOBAZAM
  5. STIRIPENTOL [Concomitant]
     Active Substance: STIRIPENTOL
  6. LEVETIRACETAM. [Concomitant]
     Active Substance: LEVETIRACETAM

REACTIONS (2)
  - Urinary retention [Recovered/Resolved]
  - Seizure [Unknown]

NARRATIVE: CASE EVENT DATE: 20170708
